FAERS Safety Report 9271551 (Version 1)
Quarter: 2013Q2

REPORT INFORMATION
  Report Type: Report from Study
  Country: CA (occurrence: CA)
  Receive Date: 20130506
  Receipt Date: 20130506
  Transmission Date: 20140414
  Serious: Yes (Other)
  Sender: FDA-Public Use
  Company Number: CA-JNJFOC-20130414439

PATIENT
  Sex: Male
  Weight: 95 kg

DRUGS (3)
  1. REMICADE [Suspect]
     Indication: CROHN^S DISEASE
     Dosage: 6 VIALS
     Route: 042
     Dates: start: 201204
  2. REMICADE [Suspect]
     Indication: CROHN^S DISEASE
     Route: 042
  3. REMICADE [Suspect]
     Indication: CROHN^S DISEASE
     Dosage: 7 VIALS
     Route: 042
     Dates: start: 2013

REACTIONS (3)
  - Rectal abscess [Unknown]
  - Fistula [Unknown]
  - Drug effect incomplete [Unknown]
